FAERS Safety Report 8783364 (Version 1)
Quarter: 2012Q4

REPORT INFORMATION
  Report Type: 
  Country: US (occurrence: US)
  Receive Date: 20120913
  Receipt Date: 20120913
  Transmission Date: 20130627
  Serious: No
  Sender: FDA-Public Use
  Company Number: US-VERTEX PHARMACEUTICAL INC.-AE-2012-008493

PATIENT
  Age: 56 Year
  Sex: Male
  Weight: 122.73 kg

DRUGS (9)
  1. INCIVEK [Suspect]
     Indication: HEPATITIS C
     Route: 048
     Dates: start: 20120506
  2. RIBAVIRIN [Concomitant]
     Indication: HEPATITIS C
     Route: 048
     Dates: start: 20120506
  3. PEGASYS [Concomitant]
     Indication: HEPATITIS C
     Route: 058
     Dates: start: 20120506
  4. ZESTRIL [Concomitant]
     Route: 048
     Dates: start: 20120625
  5. ASPIN [Concomitant]
     Route: 048
     Dates: start: 20120622
  6. SUDOGEST [Concomitant]
     Route: 048
     Dates: start: 20120529
  7. ROSUVASTATIN [Concomitant]
     Dates: start: 20120517
  8. GLYBURIDE [Concomitant]
     Route: 048
     Dates: start: 20120411
  9. HYDROCODONE-ACETAMINOPHEN [Concomitant]
     Indication: PAIN
     Route: 048
     Dates: start: 20111005

REACTIONS (5)
  - Eyelid pain [Not Recovered/Not Resolved]
  - Scleral hyperaemia [Unknown]
  - Eye discharge [Not Recovered/Not Resolved]
  - Dizziness [Recovered/Resolved]
  - Rash pruritic [Recovered/Resolved]
